FAERS Safety Report 8898735 (Version 2)
Quarter: 2012Q4

REPORT INFORMATION
  Report Type: 
  Country: ES (occurrence: ES)
  Receive Date: 20121109
  Receipt Date: 20121112
  Transmission Date: 20130627
  Serious: Yes (Hospitalization)
  Sender: FDA-Public Use
  Company Number: ES-PFIZER INC-2012278694

PATIENT
  Age: 52 Year
  Sex: Male

DRUGS (6)
  1. ATENOLOL [Suspect]
     Indication: HYPERTENSION
     Dosage: 50 mg, Daily
     Route: 048
     Dates: end: 20120328
  2. ESCITALOPRAM OXALATE [Interacting]
     Indication: SCHIZOPHRENIA
     Dosage: 20 mg, Daily
     Dates: start: 201202, end: 20120328
  3. SEROQUEL [Interacting]
     Indication: SCHIZOPHRENIA
     Dosage: 400 mg, 2x/day
     Route: 048
     Dates: start: 201202
  4. NOCTAMIDE [Interacting]
     Indication: SIMPLE SCHIZOPHRENIA
     Dosage: 2 mg, Daily
     Route: 048
     Dates: start: 201202, end: 20120328
  5. ARTANE [Interacting]
     Dosage: 2 mg, Daily
     Route: 048
     Dates: start: 201202
  6. HIDROSALURETIL [Concomitant]
     Indication: HYPERTENSION
     Dosage: 25 mg, Daily
     Route: 048
     Dates: start: 2009, end: 20120328

REACTIONS (4)
  - Drug interaction [Unknown]
  - Respiratory depression [Recovered/Resolved]
  - Somnolence [Unknown]
  - Dyspnoea [Unknown]
